FAERS Safety Report 11799442 (Version 5)
Quarter: 2018Q1

REPORT INFORMATION
  Report Type: Report from Study
  Country: US (occurrence: US)
  Receive Date: 20151203
  Receipt Date: 20180105
  Transmission Date: 20180508
  Serious: No
  Sender: FDA-Public Use
  Company Number: US-AMGEN-USASL2015122915

PATIENT
  Age: 58 Year
  Sex: Male

DRUGS (1)
  1. REPATHA [Suspect]
     Active Substance: EVOLOCUMAB
     Indication: HYPERCHOLESTEROLAEMIA
     Dosage: 140 MG, UNK
     Route: 065
     Dates: start: 2015

REACTIONS (17)
  - Influenza like illness [Unknown]
  - Respiratory disorder [Unknown]
  - Sinusitis [Unknown]
  - Respiratory tract congestion [Unknown]
  - Inappropriate schedule of drug administration [Unknown]
  - Headache [Unknown]
  - Ill-defined disorder [Unknown]
  - Nasopharyngitis [Unknown]
  - Pain [Unknown]
  - Oropharyngeal pain [Unknown]
  - Lymphadenopathy [Unknown]
  - Malaise [Unknown]
  - Adverse drug reaction [Unknown]
  - Condition aggravated [Unknown]
  - Chest pain [Unknown]
  - Sinus disorder [Unknown]
  - Back pain [Unknown]

NARRATIVE: CASE EVENT DATE: 2015
